FAERS Safety Report 10470992 (Version 4)
Quarter: 2015Q1

REPORT INFORMATION
  Report Type: Spontaneous
  Country: US (occurrence: US)
  Receive Date: 20140923
  Receipt Date: 20150324
  Transmission Date: 20150720
  Serious: Yes (Life-Threatening, Hospitalization, Other)
  Sender: FDA-Public Use
  Company Number: US-009507513-1409USA010609

PATIENT
  Sex: Female
  Weight: 72.11 kg

DRUGS (1)
  1. JANUVIA [Suspect]
     Active Substance: SITAGLIPTIN PHOSPHATE
     Indication: TYPE 2 DIABETES MELLITUS
     Dosage: 100 MG, QD
     Route: 048
     Dates: start: 20090204, end: 20130328

REACTIONS (31)
  - Breast cancer [Unknown]
  - Pancreatic mass [Unknown]
  - Hysterectomy [Unknown]
  - Incisional hernia repair [Unknown]
  - Pneumonia [Recovered/Resolved]
  - Pruritus generalised [Unknown]
  - Simple mastectomy [Unknown]
  - Cardiac failure congestive [Unknown]
  - Aortic calcification [Unknown]
  - Catheterisation cardiac [Unknown]
  - Dizziness [Unknown]
  - Spinal osteoarthritis [Unknown]
  - Clostridium difficile colitis [Recovering/Resolving]
  - Pancreatic insufficiency [Unknown]
  - Gastrooesophageal reflux disease [Unknown]
  - Pancreaticoduodenectomy [Unknown]
  - Neutropenia [Unknown]
  - Fatigue [Unknown]
  - Uterine cancer [Unknown]
  - Cholecystitis acute [Unknown]
  - Dehydration [Unknown]
  - Cholelithiasis [Unknown]
  - Sleep apnoea syndrome [Unknown]
  - Coronary artery disease [Unknown]
  - Fatigue [Unknown]
  - Hypoalbuminaemia [Unknown]
  - Osteoporosis [Unknown]
  - Oedema peripheral [Unknown]
  - Constipation [Unknown]
  - Pancreatic carcinoma [Not Recovered/Not Resolved]
  - Chronic obstructive pulmonary disease [Not Recovered/Not Resolved]

NARRATIVE: CASE EVENT DATE: 2011
